FAERS Safety Report 5630925-0 (Version None)
Quarter: 2008Q1

REPORT INFORMATION
  Report Type: 
  Country: None (occurrence: None)
  Receive Date: 20080131
  Receipt Date: 20071130
  Transmission Date: 20080703
  Serious: No
  Sender: FDA-Public Use
  Company Number: 163-21880-07101038

PATIENT
  Age: 79 Year
  Sex: Male

DRUGS (6)
  1. REVLIMID [Suspect]
     Indication: MULTIPLE MYELOMA
     Dosage: 25 MG, QD X 21 DAYS, Q28D, ORAL ; QD X 21/28 DAYS, ORAL
     Route: 048
     Dates: start: 20070913, end: 20070101
  2. REVLIMID [Suspect]
     Indication: MULTIPLE MYELOMA
     Dosage: 25 MG, QD X 21 DAYS, Q28D, ORAL ; QD X 21/28 DAYS, ORAL
     Route: 048
     Dates: start: 20070101
  3. DEXAMETHASONE TAB [Concomitant]
  4. ASPIRIN [Concomitant]
  5. MUSCLE RELAXANT (MUSCLE RELAXANTS) [Concomitant]
  6. ATIVAN [Concomitant]

REACTIONS (3)
  - CONSTIPATION [None]
  - MUSCLE SPASMS [None]
  - TREMOR [None]
